FAERS Safety Report 4502129-6 (Version None)
Quarter: 2004Q4

REPORT INFORMATION
  Report Type: 
  Country: None (occurrence: None)
  Receive Date: 20041109
  Receipt Date: 20041021
  Transmission Date: 20050328
  Serious: Yes (Hospitalization, Other)
  Sender: FDA-Public Use
  Company Number: FR_040904715

PATIENT
  Age: 65 Year
  Sex: Male

DRUGS (2)
  1. CELANCE (PERGOLIDE MESYLATE) [Suspect]
     Indication: PARKINSON'S DISEASE
     Dosage: 1.5 MG DAY
     Dates: start: 20030312, end: 20040608
  2. SELEGILINE HCL [Concomitant]

REACTIONS (13)
  - ABDOMINAL PAIN [None]
  - AORTIC DISORDER [None]
  - BACK PAIN [None]
  - BENIGN PROSTATIC HYPERPLASIA [None]
  - CONNECTIVE TISSUE DISORDER [None]
  - CONSTIPATION [None]
  - HYDRONEPHROSIS [None]
  - INSOMNIA [None]
  - MITRAL VALVE DISEASE [None]
  - MUSCULOSKELETAL DISORDER [None]
  - OEDEMA PERIPHERAL [None]
  - RETROPERITONEAL FIBROSIS [None]
  - SKIN DISORDER [None]
